FAERS Safety Report 23516376 (Version 1)
Quarter: 2024Q1

REPORT INFORMATION
  Report Type: Spontaneous
  Country: GB (occurrence: GB)
  Receive Date: 20240213
  Receipt Date: 20240213
  Transmission Date: 20240410
  Serious: No
  Sender: FDA-Public Use
  Company Number: None

PATIENT
  Age: 7 Decade
  Sex: Female

DRUGS (5)
  1. AZITHROMYCIN [Suspect]
     Active Substance: AZITHROMYCIN
     Indication: Mycobacterium kansasii infection
     Dosage: 250 MILLIGRAM, QD (EVERY 1 DAY)
     Route: 065
  2. AZITHROMYCIN [Suspect]
     Active Substance: AZITHROMYCIN
     Dosage: UNK (RECHALLENGE DOSE)
     Route: 065
  3. MOXIFLOXACIN [Suspect]
     Active Substance: MOXIFLOXACIN
     Indication: Mycobacterium kansasii infection
     Dosage: 400 MILLIGRAM, QD (EVERY 1 DAY)
     Route: 065
  4. LINEZOLID [Suspect]
     Active Substance: LINEZOLID
     Indication: Mycobacterium kansasii infection
     Dosage: 600 MILLIGRAM, QD (EVERY 1 DAY)
     Route: 065
  5. RIFABUTIN [Suspect]
     Active Substance: RIFABUTIN
     Indication: Mycobacterium kansasii infection
     Dosage: 300 MILLIGRAM, QD (EVERY 1 DAY)
     Route: 065

REACTIONS (1)
  - Diarrhoea [Unknown]
